FAERS Safety Report 11788774 (Version 2)
Quarter: 2016Q1

REPORT INFORMATION
  Report Type: Report from Study
  Country: AT (occurrence: AT)
  Receive Date: 20151201
  Receipt Date: 20160302
  Transmission Date: 20160525
  Serious: Yes (Death, Other)
  Sender: FDA-Public Use
  Company Number: AT-TEVA-604589USA

PATIENT
  Age: 77 Year
  Sex: Male

DRUGS (4)
  1. BENDAMUSTINE HYDROCHLORIDE [Suspect]
     Active Substance: BENDAMUSTINE HYDROCHLORIDE
     Indication: WALDENSTROM^S MACROGLOBULINAEMIA
     Route: 042
     Dates: start: 20110712, end: 20111221
  2. BENDAMUSTINE HYDROCHLORIDE [Suspect]
     Active Substance: BENDAMUSTINE HYDROCHLORIDE
     Indication: CYTOPENIA
  3. MABTHERA [Suspect]
     Active Substance: RITUXIMAB
     Indication: CYTOPENIA
  4. MABTHERA [Suspect]
     Active Substance: RITUXIMAB
     Indication: WALDENSTROM^S MACROGLOBULINAEMIA
     Route: 042
     Dates: start: 20110711, end: 20140331

REACTIONS (2)
  - Adenocarcinoma pancreas [Fatal]
  - Off label use [Unknown]

NARRATIVE: CASE EVENT DATE: 20110712
